FAERS Safety Report 6370679-6 (Version None)
Quarter: 2009Q3

REPORT INFORMATION
  Report Type: 
  Country: None (occurrence: None)
  Receive Date: 20090923
  Receipt Date: 20071218
  Transmission Date: 20100115
  Serious: Yes (Hospitalization)
  Sender: FDA-Public Use
  Company Number: US-ASTRAZENECA-2006UW26481

PATIENT
  Age: 649 Month
  Sex: Male
  Weight: 102.7 kg

DRUGS (11)
  1. SEROQUEL [Suspect]
     Indication: MENTAL DISORDER
     Route: 048
  2. SEROQUEL [Suspect]
     Route: 048
     Dates: start: 20050426
  3. SEROQUEL [Suspect]
     Route: 048
     Dates: start: 20050813
  4. RISPERDAL [Concomitant]
     Dates: start: 20050416
  5. ZYPREXA/SYMBYAX [Concomitant]
     Dates: start: 20061013
  6. UNSPECIFIED PSYCHIATRIC MEDICATION [Concomitant]
  7. FLUOXETINE [Concomitant]
     Dates: start: 20050416
  8. LISINOPRIL [Concomitant]
     Dates: start: 20050804
  9. SIMVASTATIN [Concomitant]
     Dates: start: 20070226
  10. EFFEXOR XR [Concomitant]
     Dosage: 75 MG TO 150MG
     Dates: start: 20060815
  11. AMLODIPINE [Concomitant]
     Dates: start: 20070425

REACTIONS (5)
  - DIABETES MELLITUS [None]
  - HYPERGLYCAEMIA [None]
  - PANCREATITIS [None]
  - PANCREATITIS ACUTE [None]
  - TYPE 2 DIABETES MELLITUS [None]
